FAERS Safety Report 9023548 (Version 9)
Quarter: 2013Q3

REPORT INFORMATION
  Report Type: Report from Study
  Country: US (occurrence: US)
  Receive Date: 20130121
  Receipt Date: 20130813
  Transmission Date: 20140515
  Serious: Yes (Other)
  Sender: FDA-Public Use
  Company Number: PHEH2013US001699

PATIENT
  Sex: Female
  Weight: 81.63 kg

DRUGS (1)
  1. GILENYA [Suspect]
     Indication: MULTIPLE SCLEROSIS
     Dosage: 0.5 MG, QD
     Route: 048
     Dates: start: 20110815

REACTIONS (17)
  - Memory impairment [Unknown]
  - Emotional disorder [Unknown]
  - Confusional state [Unknown]
  - Convulsion [Not Recovered/Not Resolved]
  - Loss of consciousness [Not Recovered/Not Resolved]
  - Fall [Not Recovered/Not Resolved]
  - Head discomfort [Unknown]
  - Hypokinesia [Unknown]
  - Speech disorder [Unknown]
  - Spinal column injury [Not Recovered/Not Resolved]
  - Movement disorder [Unknown]
  - Feeling abnormal [Unknown]
  - Contusion [Not Recovered/Not Resolved]
  - Stress [Not Recovered/Not Resolved]
  - Insomnia [Unknown]
  - Dysgraphia [Not Recovered/Not Resolved]
  - Visual acuity reduced [Not Recovered/Not Resolved]
